FAERS Safety Report 13587385 (Version 4)
Quarter: 2017Q4

REPORT INFORMATION
  Report Type: Report from Study
  Country: US (occurrence: US)
  Receive Date: 20170526
  Receipt Date: 20171229
  Transmission Date: 20180320
  Serious: Yes (Hospitalization, Other)
  Sender: FDA-Public Use
  Company Number: US-ARIAD PHARMACEUTICALS, INC-2017US008013

PATIENT
  Sex: Female

DRUGS (2)
  1. PONATINIB [Suspect]
     Active Substance: PONATINIB
     Indication: ACUTE LYMPHOCYTIC LEUKAEMIA RECURRENT
     Dosage: 45 MG, QD
     Route: 048
     Dates: start: 20170328
  2. PONATINIB [Suspect]
     Active Substance: PONATINIB
     Dosage: 30 MG, QD
     Route: 048

REACTIONS (9)
  - Hospitalisation [Unknown]
  - Chemotherapy [Unknown]
  - Balance disorder [Unknown]
  - Blood count abnormal [Unknown]
  - Constipation [Unknown]
  - Dry mouth [Not Recovered/Not Resolved]
  - Neuropathy peripheral [Unknown]
  - Haemoglobin decreased [Unknown]
  - Abdominal pain upper [Not Recovered/Not Resolved]
